FAERS Safety Report 7774639-X (Version None)
Quarter: 2011Q3

REPORT INFORMATION
  Report Type: 
  Country: None (occurrence: None)
  Receive Date: 20110923
  Receipt Date: 20110909
  Transmission Date: 20111222
  Serious: Yes (Hospitalization)
  Sender: FDA-Public Use
  Company Number: NL-AMGEN-QUU429180

PATIENT
  Age: 76 Year
  Sex: Female

DRUGS (8)
  1. NASONEX [Concomitant]
     Indication: SEASONAL ALLERGY
     Dosage: UNK UNK, QD
     Route: 045
     Dates: start: 20060101
  2. ETANERCEPT [Suspect]
     Indication: RHEUMATOID ARTHRITIS
     Dosage: 50 MG, QWK
     Route: 058
     Dates: start: 20100715
  3. OMEPRAZOLE [Concomitant]
     Indication: PROPHYLAXIS
     Dosage: 20 MG, QD
     Dates: start: 20100301
  4. METHOTREXATE SODIUM [Concomitant]
     Indication: RHEUMATOID ARTHRITIS
     Dosage: UNK
     Dates: start: 20100715
  5. FEXOFENADINE [Concomitant]
     Indication: SEASONAL ALLERGY
     Dosage: 120 MG, QD
     Dates: start: 20060101
  6. BROTIZOLAM [Concomitant]
     Indication: SLEEP DISORDER
     Dosage: .25 MG, BID
     Dates: start: 20050101
  7. IBUPROFEN [Concomitant]
     Indication: RHEUMATOID ARTHRITIS
     Dosage: 600 MG, PRN
     Dates: start: 20100301
  8. FLUVOXAMINE [Concomitant]
     Indication: BURNOUT SYNDROME
     Dosage: 50 MG, BID
     Dates: start: 20050101

REACTIONS (1)
  - HEADACHE [None]
